FAERS Safety Report 13501864 (Version 4)
Quarter: 2017Q3

REPORT INFORMATION
  Report Type: Spontaneous
  Country: IT (occurrence: IT)
  Receive Date: 20170502
  Receipt Date: 20170817
  Transmission Date: 20171127
  Serious: Yes (Death, Other)
  Sender: FDA-Public Use
  Company Number: IT-AMGEN-ITASP2017064676

PATIENT
  Age: 47 Year
  Sex: Female
  Weight: 55 kg

DRUGS (6)
  1. AVASTIN [Suspect]
     Active Substance: BEVACIZUMAB
     Indication: BREAST CANCER METASTATIC
     Dosage: 400 MG, UNK
     Route: 042
     Dates: start: 20161116, end: 20170223
  2. AVASTIN [Suspect]
     Active Substance: BEVACIZUMAB
     Dosage: 100 MG, UNK
     Route: 042
     Dates: start: 20161116, end: 20170223
  3. PACLITAXEL TEVA [Suspect]
     Active Substance: PACLITAXEL
     Indication: BREAST CANCER METASTATIC
     Dosage: 6 MG/ML, QWK
     Route: 042
     Dates: start: 20161116, end: 20170223
  4. XGEVA [Suspect]
     Active Substance: DENOSUMAB
     Indication: BREAST CANCER METASTATIC
     Dosage: 120 MG, UNK
     Route: 065
  5. DESAMETASONE [Concomitant]
     Active Substance: DEXAMETHASONE
     Dosage: 8 MG, UNK
     Dates: start: 20161116, end: 20170223
  6. CIPROFLOXACINA [Concomitant]
     Active Substance: CIPROFLOXACIN
     Dosage: 1000 MG, UNK
     Dates: start: 20170315, end: 20170322

REACTIONS (5)
  - Thrombocytopenic purpura [Unknown]
  - Abdominal pain [Fatal]
  - Confusional state [Fatal]
  - Platelet count decreased [Fatal]
  - Haemolytic anaemia [Fatal]

NARRATIVE: CASE EVENT DATE: 20170329
